FAERS Safety Report 12914543 (Version 2)
Quarter: 2017Q1

REPORT INFORMATION
  Report Type: Spontaneous
  Country: US (occurrence: US)
  Receive Date: 20161106
  Receipt Date: 20170216
  Transmission Date: 20170428
  Serious: No
  Sender: FDA-Public Use
  Company Number: US-RELYPSA-RLY2016003180

PATIENT
  Age: 67 Year
  Sex: Male

DRUGS (12)
  1. VELTASSA [Suspect]
     Active Substance: PATIROMER
     Indication: HYPERKALAEMIA
     Dosage: 8.4 MG, QD
     Route: 048
     Dates: start: 20160818
  2. OMEPRAZOLE. [Concomitant]
     Active Substance: OMEPRAZOLE
  3. WARFARIN [Concomitant]
     Active Substance: WARFARIN
  4. TRAVATAN [Concomitant]
     Active Substance: TRAVOPROST
  5. SODIUM BICARBONATE. [Concomitant]
     Active Substance: SODIUM BICARBONATE
  6. SIMVASTATIN. [Concomitant]
     Active Substance: SIMVASTATIN
  7. VELTASSA [Suspect]
     Active Substance: PATIROMER
     Dosage: 8.4 MG, QD
     Route: 048
     Dates: start: 20160818
  8. HUMULIN NOS [Concomitant]
     Active Substance: INSULIN HUMAN
  9. CARVEDILOL. [Concomitant]
     Active Substance: CARVEDILOL
  10. AMLODIPINE [Concomitant]
     Active Substance: AMLODIPINE BESYLATE
  11. VITAMIN D                          /00107901/ [Concomitant]
     Active Substance: ERGOCALCIFEROL
  12. INSULIN [Concomitant]
     Active Substance: INSULIN NOS

REACTIONS (2)
  - Influenza like illness [Recovered/Resolved]
  - Chills [Recovered/Resolved]

NARRATIVE: CASE EVENT DATE: 20161015
